FAERS Safety Report 25700041 (Version 3)
Quarter: 2025Q3

REPORT INFORMATION
  Report Type: Report from Study
  Country: CA (occurrence: CA)
  Receive Date: 20250819
  Receipt Date: 20250926
  Transmission Date: 20251020
  Serious: Yes (Other)
  Sender: ALEXION PHARMACEUTICALS
  Company Number: CA-AstraZeneca-2024A130959

PATIENT
  Sex: Female
  Weight: 62.5 kg

DRUGS (2)
  1. TEZEPELUMAB [Suspect]
     Active Substance: TEZEPELUMAB
  2. TEZEPELUMAB [Suspect]
     Active Substance: TEZEPELUMAB

REACTIONS (7)
  - Oral candidiasis [Unknown]
  - Respiratory moniliasis [Unknown]
  - Product dose omission issue [Unknown]
  - Sensation of foreign body [Unknown]
  - Anxiety [Unknown]
  - Candida infection [Unknown]
  - Medication error [Unknown]

NARRATIVE: CASE EVENT DATE: 20220101
